FAERS Safety Report 17098609 (Version 2)
Quarter: 2019Q4

REPORT INFORMATION
  Report Type: Spontaneous
  Country: US (occurrence: US)
  Receive Date: 20191202
  Receipt Date: 20191223
  Transmission Date: 20200122
  Serious: Yes (Hospitalization)
  Sender: FDA-Public Use
  Company Number: US-PFIZER INC-2019509388

PATIENT
  Age: 75 Year
  Sex: Male
  Weight: 98 kg

DRUGS (3)
  1. DOFETILIDE. [Suspect]
     Active Substance: DOFETILIDE
     Dosage: 250 MG, 2X/DAY
     Dates: start: 20190719, end: 20191120
  2. DOFETILIDE. [Suspect]
     Active Substance: DOFETILIDE
     Indication: ATRIAL FIBRILLATION
     Dosage: 250 UG, 2X/DAY, (250MCG TWICE A DAY)
     Dates: start: 201907, end: 201911
  3. TIKOSYN [Suspect]
     Active Substance: DOFETILIDE
     Dosage: UNK

REACTIONS (4)
  - Constipation [Recovered/Resolved]
  - Abdominal distension [Recovered/Resolved]
  - Rash macular [Not Recovered/Not Resolved]
  - Therapeutic product effect incomplete [Recovered/Resolved]

NARRATIVE: CASE EVENT DATE: 201907
